FAERS Safety Report 8198123-7 (Version None)
Quarter: 2012Q1

REPORT INFORMATION
  Report Type: 
  Country: None (occurrence: None)
  Receive Date: 20120309
  Receipt Date: 20120224
  Transmission Date: 20120608
  Serious: Yes (Hospitalization, Other)
  Sender: FDA-Public Use
  Company Number: KP-WATSON-2012-03637

PATIENT
  Age: 74 Year
  Sex: Female

DRUGS (1)
  1. METRONIDAZOLE [Suspect]
     Indication: FEMALE GENITAL TRACT FISTULA
     Dosage: 1000 MG, DAILY
     Route: 048

REACTIONS (10)
  - DYSPHAGIA [None]
  - GAIT DISTURBANCE [None]
  - NYSTAGMUS [None]
  - ATAXIA [None]
  - POLYNEUROPATHY [None]
  - TOXIC ENCEPHALOPATHY [None]
  - CEREBELLAR SYNDROME [None]
  - NUCLEAR MAGNETIC RESONANCE IMAGING BRAIN ABNORMAL [None]
  - DYSARTHRIA [None]
  - COGWHEEL RIGIDITY [None]
